FAERS Safety Report 5287182-7 (Version None)
Quarter: 2007Q1

REPORT INFORMATION
  Report Type: 
  Country: None (occurrence: None)
  Receive Date: 20070330
  Receipt Date: 20070320
  Transmission Date: 20070707
  Serious: Yes (Other)
  Sender: FDA-Public Use
  Company Number: 011909

PATIENT
  Sex: Female

DRUGS (1)
  1. ADDERALL 10 [Suspect]

REACTIONS (5)
  - DEATH OF RELATIVE [None]
  - HALLUCINATION, AUDITORY [None]
  - MULTIPLE INJURIES [None]
  - PSYCHOTIC DISORDER [None]
  - ROAD TRAFFIC ACCIDENT [None]
